FAERS Safety Report 6785245-8 (Version None)
Quarter: 2010Q2

REPORT INFORMATION
  Report Type: 
  Country: None (occurrence: None)
  Receive Date: 20100622
  Receipt Date: 20100622
  Transmission Date: 20101027
  Serious: Yes (Hospitalization)
  Sender: FDA-Public Use
  Company Number: None

PATIENT
  Age: 67 Year
  Sex: Male
  Weight: 87 kg

DRUGS (1)
  1. SIMVASTATIN [Suspect]
     Indication: HYPERLIPIDAEMIA
     Dosage: 80MG QHS PO
     Route: 048
     Dates: start: 20100317, end: 20100419

REACTIONS (4)
  - DYSSTASIA [None]
  - FALL [None]
  - GAIT DISTURBANCE [None]
  - RHABDOMYOLYSIS [None]
